FAERS Safety Report 15617282 (Version 1)
Quarter: 2018Q4

REPORT INFORMATION
  Report Type: Spontaneous
  Country: US (occurrence: US)
  Receive Date: 20181114
  Receipt Date: 20181114
  Transmission Date: 20190205
  Serious: Yes (Life-Threatening, Disabling)
  Sender: FDA-Public Use
  Company Number: None

PATIENT
  Sex: Female

DRUGS (1)
  1. MIRENA [Suspect]
     Active Substance: LEVONORGESTREL
     Indication: CONTRACEPTION
     Dates: start: 20171015

REACTIONS (11)
  - Headache [None]
  - Panic attack [None]
  - Agitation [None]
  - Photophobia [None]
  - Impaired work ability [None]
  - Depression [None]
  - Suicidal ideation [None]
  - Anger [None]
  - Hyperacusis [None]
  - Anxiety [None]
  - Feeling abnormal [None]
